FAERS Safety Report 4366327-7 (Version None)
Quarter: 2004Q2

REPORT INFORMATION
  Report Type: 
  Country: None (occurrence: None)
  Receive Date: 20040527
  Receipt Date: 20030814
  Transmission Date: 20050107
  Serious: Yes (Hospitalization)
  Sender: FDA-Public Use
  Company Number: US-GLAXOSMITHKLINE-A0421228A

PATIENT
  Sex: Male

DRUGS (7)
  1. ALBUTEROL [Suspect]
     Indication: ILL-DEFINED DISORDER
     Route: 055
  2. SEREVENT [Suspect]
     Dosage: 1PUFF TWICE PER DAY
     Route: 055
     Dates: start: 20030813, end: 20030814
  3. SEREVENT [Concomitant]
     Route: 055
     Dates: end: 20030813
  4. PRILOSEC [Concomitant]
  5. LANOXIN [Concomitant]
     Route: 065
  6. UNSPECIFIED MEDICATION [Concomitant]
  7. NITRODERM PATCH [Concomitant]

REACTIONS (5)
  - CHEST DISCOMFORT [None]
  - DYSPNOEA [None]
  - HEADACHE [None]
  - NAUSEA [None]
  - OBSTRUCTIVE AIRWAYS DISORDER [None]
